FAERS Safety Report 8272178-3 (Version None)
Quarter: 2012Q1

REPORT INFORMATION
  Report Type: 
  Country: None (occurrence: None)
  Receive Date: 20120312
  Receipt Date: 20120104
  Transmission Date: 20120608
  Serious: No
  Sender: FDA-Public Use
  Company Number: 2012SP000936

PATIENT
  Sex: Male

DRUGS (3)
  1. SAPHRIS [Suspect]
     Indication: PRODUCT USED FOR UNKNOWN INDICATION
     Dosage: 5 MG;BID;SL
     Route: 060
     Dates: start: 20110401
  2. CARBETALOL (CARVEDILOL) [Concomitant]
  3. LOSARTAN POTASSIUM [Concomitant]

REACTIONS (2)
  - TINNITUS [None]
  - DIZZINESS [None]
